FAERS Safety Report 15060712 (Version 1)
Quarter: 2018Q2

REPORT INFORMATION
  Report Type: Spontaneous
  Country: BR (occurrence: BR)
  Receive Date: 20180625
  Receipt Date: 20180625
  Transmission Date: 20180711
  Serious: Yes (Death, Hospitalization)
  Sender: FDA-Public Use
  Company Number: BR-ELI_LILLY_AND_COMPANY-BR201806009873

PATIENT

DRUGS (1)
  1. LARTRUVO [Suspect]
     Active Substance: OLARATUMAB
     Indication: PRODUCT USED FOR UNKNOWN INDICATION
     Dosage: UNK UNK, CYCLICAL
     Route: 065

REACTIONS (3)
  - Respiratory failure [Unknown]
  - Off label use [Unknown]
  - Death [Fatal]
